FAERS Safety Report 8137873-5 (Version None)
Quarter: 2012Q1

REPORT INFORMATION
  Report Type: 
  Country: None (occurrence: None)
  Receive Date: 20120213
  Receipt Date: 20120206
  Transmission Date: 20120608
  Serious: Yes (Other)
  Sender: FDA-Public Use
  Company Number: AUR-APL-2012-00818

PATIENT
  Age: 55 Year
  Sex: Female

DRUGS (2)
  1. LEVOXYL [Concomitant]
  2. SIMVASTATIN [Suspect]
     Indication: BLOOD CHOLESTEROL
     Dosage: 20 MG (20 MG, 1 IN 1 D), ORAL
     Route: 048
     Dates: start: 20111020

REACTIONS (1)
  - LOW DENSITY LIPOPROTEIN INCREASED [None]
